FAERS Safety Report 6010699-4 (Version None)
Quarter: 2008Q4

REPORT INFORMATION
  Report Type: 
  Country: None (occurrence: None)
  Receive Date: 20081218
  Receipt Date: 20081210
  Transmission Date: 20090506
  Serious: Yes (Other)
  Sender: FDA-Public Use
  Company Number: BR-JNJFOC-20081100828

PATIENT
  Sex: Female
  Weight: 17.8 kg

DRUGS (1)
  1. ORTHOCLONE [Suspect]
     Indication: TRANSPLANT REJECTION

REACTIONS (3)
  - MENINGITIS ASEPTIC [None]
  - MUSCULOSKELETAL DISORDER [None]
  - SYSTEMIC INFLAMMATORY RESPONSE SYNDROME [None]
